FAERS Safety Report 9303788 (Version 6)
Quarter: 2014Q1

REPORT INFORMATION
  Report Type: Spontaneous
  Country: US (occurrence: US)
  Receive Date: 20130522
  Receipt Date: 20140311
  Transmission Date: 20141002
  Serious: Yes (Hospitalization)
  Sender: FDA-Public Use
  Company Number: US-GLAXOSMITHKLINE-A1024305A

PATIENT
  Age: 57 Year
  Sex: Male
  Weight: 86.4 kg

DRUGS (3)
  1. ZOFRAN [Suspect]
     Indication: NAUSEA
     Dosage: 4MG UNKNOWN
     Dates: start: 20121214, end: 20121215
  2. SOTALOL [Suspect]
     Indication: ATRIAL FIBRILLATION
  3. REGLAN [Concomitant]

REACTIONS (16)
  - Atrial fibrillation [Recovering/Resolving]
  - Cardiac flutter [Unknown]
  - Vomiting [Unknown]
  - Retching [Unknown]
  - Nausea [Unknown]
  - Drug interaction [Unknown]
  - Adverse event [Unknown]
  - Chest discomfort [Unknown]
  - Labile blood pressure [Unknown]
  - Anxiety [Unknown]
  - Pain [Unknown]
  - Discomfort [Unknown]
  - Abdominal discomfort [Unknown]
  - Drug prescribing error [Unknown]
  - Off label use [Unknown]
  - Abdominal pain upper [Unknown]
